FAERS Safety Report 5708080-8 (Version None)
Quarter: 2008Q2

REPORT INFORMATION
  Report Type: 
  Country: None (occurrence: None)
  Receive Date: 20080417
  Receipt Date: 20080404
  Transmission Date: 20081010
  Serious: Yes (Hospitalization)
  Sender: FDA-Public Use
  Company Number: US-AMGEN-QUU272964

PATIENT
  Sex: Male

DRUGS (2)
  1. ENBREL [Suspect]
     Indication: RHEUMATOID ARTHRITIS
     Route: 058
     Dates: start: 20050601
  2. METHOTREXATE [Concomitant]
     Route: 048

REACTIONS (8)
  - DISSEMINATED INTRAVASCULAR COAGULATION [None]
  - ESCHERICHIA INFECTION [None]
  - MEGACOLON [None]
  - PANCREATITIS [None]
  - PLATELET COUNT DECREASED [None]
  - RENAL FAILURE [None]
  - WHITE BLOOD CELL COUNT INCREASED [None]
  - WOUND INFECTION [None]
